FAERS Safety Report 7825432-0 (Version None)
Quarter: 2011Q3

REPORT INFORMATION
  Report Type: 
  Country: None (occurrence: None)
  Receive Date: 20110919
  Receipt Date: 20110907
  Transmission Date: 20111222
  Serious: Yes (Other)
  Sender: FDA-Public Use
  Company Number: 2011029733

PATIENT
  Sex: Male
  Weight: 81.6475 kg

DRUGS (2)
  1. PRIVIGEN [Suspect]
     Indication: RADIAL NERVE PALSY
     Dosage: 40 G QD INTRAVENOUS (NOT OTHERWISE SPECIFIED)
     Route: 042
     Dates: start: 20110502, end: 20110503
  2. XANAX [Concomitant]

REACTIONS (8)
  - FATIGUE [None]
  - PSYCHOTIC DISORDER [None]
  - LACTOSE INTOLERANCE [None]
  - FEELING COLD [None]
  - DIARRHOEA HAEMORRHAGIC [None]
  - ASTHENIA [None]
  - INSOMNIA [None]
  - HYPERMETROPIA [None]
